FAERS Safety Report 4937188-X (Version None)
Quarter: 2006Q1

REPORT INFORMATION
  Report Type: 
  Country: None (occurrence: None)
  Receive Date: 20060302
  Receipt Date: 20060214
  Transmission Date: 20060701
  Serious: Yes (Other)
  Sender: FDA-Public Use
  Company Number: FR200602002963

PATIENT
  Sex: Male

DRUGS (1)
  1. HUMATROPE [Suspect]
     Dosage: SUBCUTANEOUS
     Route: 058
     Dates: start: 20050601

REACTIONS (1)
  - IDIOPATHIC THROMBOCYTOPENIC PURPURA [None]
